FAERS Safety Report 5223129-7 (Version None)
Quarter: 2007Q1

REPORT INFORMATION
  Report Type: 
  Country: None (occurrence: None)
  Receive Date: 20070129
  Receipt Date: 20070119
  Transmission Date: 20070707
  Serious: Yes (Other)
  Sender: FDA-Public Use
  Company Number: US-PFIZER INC-2007005610

PATIENT
  Sex: Female
  Weight: 120.7 kg

DRUGS (8)
  1. LIPITOR [Suspect]
     Indication: BLOOD CHOLESTEROL INCREASED
  2. PAXIL [Concomitant]
  3. NEXIUM [Concomitant]
  4. SINEMET [Concomitant]
  5. PIROXICAM [Concomitant]
  6. METRONIDAZOLE [Concomitant]
  7. MULTI-VITAMINS [Concomitant]
  8. CALCIUM [Concomitant]

REACTIONS (2)
  - GASTRIC BANDING [None]
  - MYALGIA [None]
